FAERS Safety Report 17332329 (Version 1)
Quarter: 2020Q1

REPORT INFORMATION
  Report Type: Spontaneous
  Country: CA (occurrence: CA)
  Receive Date: 20200127
  Receipt Date: 20200127
  Transmission Date: 20200409
  Serious: Yes (Other)
  Sender: FDA-Public Use
  Company Number: CA-AUROBINDO-AUR-APL-2020-003731

PATIENT
  Age: 50 Year
  Sex: Female
  Weight: 95 kg

DRUGS (1)
  1. AMLODIPINE [Suspect]
     Active Substance: AMLODIPINE BESYLATE
     Indication: PRODUCT USED FOR UNKNOWN INDICATION
     Dosage: 5 MILLIGRAM, ONCE A DAY
     Route: 065

REACTIONS (5)
  - Product substitution issue [Unknown]
  - Joint swelling [Unknown]
  - Generalised oedema [Unknown]
  - Swelling [Unknown]
  - Flank pain [Unknown]
